APPROVED DRUG PRODUCT: MIDAZOLAM HYDROCHLORIDE
Active Ingredient: MIDAZOLAM HYDROCHLORIDE
Strength: EQ 1MG BASE/ML
Dosage Form/Route: INJECTABLE;INJECTION
Application: A078511 | Product #001
Applicant: PH HEALTH LTD
Approved: Nov 10, 2008 | RLD: No | RS: No | Type: DISCN